FAERS Safety Report 4442837-9 (Version None)
Quarter: 2004Q3

REPORT INFORMATION
  Report Type: 
  Country: None (occurrence: None)
  Receive Date: 20040903
  Receipt Date: 20040520
  Transmission Date: 20050211
  Serious: Yes (Other)
  Sender: FDA-Public Use
  Company Number: 2004UW10685

PATIENT
  Age: 64 Year
  Sex: Male
  Weight: 101.6057 kg

DRUGS (6)
  1. CRESTOR [Suspect]
     Indication: BLOOD CHOLESTEROL INCREASED
     Dosage: 10 MG QD PO
     Route: 048
  2. ACCUPRIL [Concomitant]
  3. DYAZIDE [Concomitant]
  4. AMBIEN [Concomitant]
  5. LOMOTIL [Concomitant]
  6. UNSPECIFIED INHALERS [Concomitant]

REACTIONS (3)
  - DIARRHOEA [None]
  - LAZINESS [None]
  - STOMACH DISCOMFORT [None]
